FAERS Safety Report 16135416 (Version 1)
Quarter: 2019Q1

REPORT INFORMATION
  Report Type: Spontaneous
  Country: US (occurrence: US)
  Receive Date: 20190329
  Receipt Date: 20190329
  Transmission Date: 20190418
  Serious: No
  Sender: FDA-Public Use
  Company Number: US-BAUSCH-BL-2018-016946

PATIENT
  Sex: Female

DRUGS (1)
  1. RENOVA [Suspect]
     Active Substance: TRETINOIN
     Indication: SKIN WRINKLING
     Route: 061

REACTIONS (2)
  - Headache [Not Recovered/Not Resolved]
  - Dry eye [Not Recovered/Not Resolved]
